FAERS Safety Report 5061755-9 (Version None)
Quarter: 2006Q3

REPORT INFORMATION
  Report Type: 
  Country: None (occurrence: None)
  Receive Date: 20060726
  Receipt Date: 20050923
  Transmission Date: 20061208
  Serious: No
  Sender: FDA-Public Use
  Company Number: 2005/03011

PATIENT
  Age: 79 Year
  Sex: Female

DRUGS (5)
  1. DYAZIDE [Suspect]
     Indication: HYPERTENSION
     Dosage: 37.5MG UNKNOWN
     Route: 048
     Dates: start: 20050101, end: 20050814
  2. VERAPAMIL [Suspect]
     Indication: HYPERTENSION
     Dosage: .5TAB PER DAY
     Route: 048
  3. IBUPROFEN [Suspect]
     Indication: OSTEOARTHRITIS
     Dosage: 200MG UNKNOWN
     Route: 048
  4. ZANTAC [Concomitant]
     Dosage: 150MG UNKNOWN
     Route: 065
  5. VIOXX [Concomitant]
     Route: 065

REACTIONS (5)
  - CHILLS [None]
  - DRUG INTERACTION [None]
  - HYPERHIDROSIS [None]
  - HYPOTENSION [None]
  - POLYURIA [None]
